FAERS Safety Report 11153356 (Version 2)
Quarter: 2015Q2

REPORT INFORMATION
  Report Type: Spontaneous
  Country: FR (occurrence: FR)
  Receive Date: 20150601
  Receipt Date: 20150605
  Transmission Date: 20150821
  Serious: Yes (Hospitalization)
  Sender: FDA-Public Use
  Company Number: FR-009507513-1505FRA015167

PATIENT
  Age: 72 Year
  Sex: Male

DRUGS (7)
  1. CETIRIZINE HYDROCHLORIDE. [Concomitant]
     Active Substance: CETIRIZINE HYDROCHLORIDE
     Dosage: 1 DF, QD
  2. NICOBION [Concomitant]
     Active Substance: NIACINAMIDE
     Dosage: 1 DF, QD
  3. CETORNAN [Concomitant]
     Dosage: 1 DF, QD
  4. TRIFLUCAN [Concomitant]
     Active Substance: FLUCONAZOLE
     Dosage: 300 MG, QD
  5. TIENAM IV 250MG/250MG, POUDRE POUR PERFUSION [Suspect]
     Active Substance: CILASTATIN SODIUM\IMIPENEM
     Indication: INFECTION
     Dosage: 4 TIMES DAILY
     Route: 042
     Dates: start: 20150328, end: 20150330
  6. DAPTOMYCIN. [Suspect]
     Active Substance: DAPTOMYCIN
     Indication: INFECTION
     Dosage: 500 MG, QD
     Route: 042
     Dates: start: 20150328, end: 20150331
  7. HYDROCORTISONE. [Concomitant]
     Active Substance: HYDROCORTISONE
     Dosage: 80 MG, QD

REACTIONS (1)
  - Toxic skin eruption [Recovering/Resolving]

NARRATIVE: CASE EVENT DATE: 20150329
